FAERS Safety Report 23864054 (Version 1)
Quarter: 2024Q2

REPORT INFORMATION
  Report Type: Report from Study
  Country: CN (occurrence: CN)
  Receive Date: 20240516
  Receipt Date: 20240516
  Transmission Date: 20240715
  Serious: Yes (Death)
  Sender: FDA-Public Use
  Company Number: CN-GUERBET / FUNDTRIP PHARMACEUTICALS-CN-20240123

PATIENT
  Age: 74 Year
  Sex: Male

DRUGS (2)
  1. LIPIODOL [Suspect]
     Active Substance: ETHIODIZED OIL
     Indication: Therapeutic embolisation
     Dosage: LIPIODOL (ETHIODIZED OIL) WITH HISTOACRYL-BLUE (NBCA) A RATIO OF 1:4, AND POLYVINYL ALCOHOL (PVA) PA
     Route: 013
  2. HISTOACRYL [Suspect]
     Active Substance: ENBUCRILATE
     Indication: Therapeutic embolisation
     Dosage: LIPIODOL (ETHIODIZED OIL) WITH HISTOACRYL-BLUE (NBCA) A RATIO OF 1:4, AND POLYVINYL ALCOHOL (PVA) PA
     Route: 013

REACTIONS (2)
  - Infection [Fatal]
  - Product use in unapproved indication [Fatal]
